FAERS Safety Report 20782288 (Version 1)
Quarter: 2022Q2

REPORT INFORMATION
  Report Type: Spontaneous
  Country: GB (occurrence: GB)
  Receive Date: 20220504
  Receipt Date: 20220504
  Transmission Date: 20220721
  Serious: Yes (Other)
  Sender: FDA-Public Use
  Company Number: GB-MHRA-MED-202204281200070050-AOJMQ

PATIENT
  Age: 26 Year
  Sex: Male
  Weight: 79 kg

DRUGS (2)
  1. MIRTAZAPINE [Suspect]
     Active Substance: MIRTAZAPINE
     Indication: Depression
     Dosage: STARTED ON WITH 20MG
     Dates: start: 20170701, end: 20190101
  2. MIRTAZAPINE [Suspect]
     Active Substance: MIRTAZAPINE
     Dosage: 40MG ONCE A DAY AT NIGHT
     Dates: start: 20190101

REACTIONS (2)
  - Loss of libido [Not Recovered/Not Resolved]
  - Genital disorder [Not Recovered/Not Resolved]

NARRATIVE: CASE EVENT DATE: 20190101
